FAERS Safety Report 8181394-0 (Version None)
Quarter: 2012Q1

REPORT INFORMATION
  Report Type: 
  Country: None (occurrence: None)
  Receive Date: 20120126
  Receipt Date: 20111014
  Transmission Date: 20120608
  Serious: Yes (Other)
  Sender: FDA-Public Use
  Company Number: PHHY2011US38700

PATIENT
  Age: 31 Year
  Sex: Female

DRUGS (16)
  1. CALCIUM CARBONATE [Concomitant]
  2. KLONOPIN [Concomitant]
  3. BANZEL (RUFINAMIDE) [Concomitant]
  4. AFINITOR [Suspect]
     Indication: TUBEROUS SCLEROSIS
     Dosage: 5 MG, DAILY, ORAL 7.5 MG, DAILY, ORAL 10 MG, DAILY, ORAL
     Route: 048
     Dates: end: 20110930
  5. AFINITOR [Suspect]
     Indication: TUBEROUS SCLEROSIS
     Dosage: 5 MG, DAILY, ORAL 7.5 MG, DAILY, ORAL 10 MG, DAILY, ORAL
     Route: 048
     Dates: start: 20101227
  6. DOXEPIN HCL [Concomitant]
  7. PROGESTERONE [Concomitant]
  8. TOPAMAX [Concomitant]
  9. ZINC (ZINC) [Concomitant]
  10. MULTIVITAMINS (ASCORBIC ACID, ERGOCALCIFEROL, FOLIC ACID, NICOTINAMIDE [Concomitant]
  11. MAGNESIUM (MAGNESIUM) [Concomitant]
  12. GINGER ALE (ZINGIBER OFFICINALE RHIZOME) [Concomitant]
  13. LAMICTAL [Concomitant]
  14. VITAMIN B12 [Concomitant]
  15. VITAMIN D (ERGOCALCIFIEROL) [Concomitant]
  16. POTASSIUM CHLORIDE [Concomitant]

REACTIONS (10)
  - ABDOMINAL DISCOMFORT [None]
  - BLOOD CREATININE INCREASED [None]
  - CONSTIPATION [None]
  - RESTLESS LEGS SYNDROME [None]
  - DIARRHOEA [None]
  - MUSCLE SPASMS [None]
  - CONVULSION [None]
  - FEELING COLD [None]
  - NAUSEA [None]
  - ELECTROLYTE DEPLETION [None]
